FAERS Safety Report 21421877 (Version 4)
Quarter: 2022Q4

REPORT INFORMATION
  Report Type: Spontaneous
  Country: GB (occurrence: GB)
  Receive Date: 20221007
  Receipt Date: 20221206
  Transmission Date: 20230113
  Serious: Yes (Other)
  Sender: FDA-Public Use
  Company Number: GB-NOVARTISPH-NVSC2022GB226282

PATIENT
  Age: 40 Year
  Sex: Female
  Weight: 91 kg

DRUGS (66)
  1. PANOBINOSTAT [Suspect]
     Active Substance: PANOBINOSTAT
     Indication: Plasma cell myeloma
     Dosage: UNK, CYCLE 1
     Route: 065
     Dates: start: 20200522
  2. PANOBINOSTAT [Suspect]
     Active Substance: PANOBINOSTAT
     Dosage: UNK, CYCLE 2
     Route: 065
     Dates: start: 20200619
  3. PANOBINOSTAT [Suspect]
     Active Substance: PANOBINOSTAT
     Dosage: UNK, CYCLE 3
     Route: 065
     Dates: start: 20200717
  4. PANOBINOSTAT [Suspect]
     Active Substance: PANOBINOSTAT
     Dosage: UNK, CYCLE 4
     Route: 065
     Dates: start: 20200819
  5. PANOBINOSTAT [Suspect]
     Active Substance: PANOBINOSTAT
     Dosage: UNK, CYCLE 5
     Route: 065
     Dates: start: 20200911
  6. PANOBINOSTAT [Suspect]
     Active Substance: PANOBINOSTAT
     Dosage: UNK, CYCLE 6
     Route: 065
     Dates: start: 20201230
  7. PANOBINOSTAT [Suspect]
     Active Substance: PANOBINOSTAT
     Dosage: UNK, CYCLE 7
     Route: 065
     Dates: start: 20210127
  8. PANOBINOSTAT [Suspect]
     Active Substance: PANOBINOSTAT
     Dosage: UNK, CYCLE 8
     Route: 065
     Dates: start: 20210224
  9. PANOBINOSTAT [Suspect]
     Active Substance: PANOBINOSTAT
     Dosage: UNK, CYCLE 9
     Route: 065
     Dates: start: 20210324
  10. PANOBINOSTAT [Suspect]
     Active Substance: PANOBINOSTAT
     Dosage: UNK, CYCLE 10
     Route: 065
     Dates: start: 20210421
  11. PANOBINOSTAT [Suspect]
     Active Substance: PANOBINOSTAT
     Dosage: UNK, CYCLE 11
     Route: 065
     Dates: start: 20210520
  12. PANOBINOSTAT [Suspect]
     Active Substance: PANOBINOSTAT
     Dosage: UNK, CYCLE 12
     Route: 065
     Dates: start: 20210616
  13. PANOBINOSTAT [Suspect]
     Active Substance: PANOBINOSTAT
     Dosage: UNK, CYCLE 13
     Route: 065
     Dates: start: 20210923
  14. PANOBINOSTAT [Suspect]
     Active Substance: PANOBINOSTAT
     Dosage: UNK, CYCLE 14
     Route: 065
     Dates: start: 20211021
  15. PANOBINOSTAT [Suspect]
     Active Substance: PANOBINOSTAT
     Dosage: UNK, CYCLE 15
     Route: 065
     Dates: start: 20211124
  16. PANOBINOSTAT [Suspect]
     Active Substance: PANOBINOSTAT
     Dosage: UNK, CYCLE 16
     Route: 065
     Dates: start: 20211222
  17. BORTEZOMIB [Suspect]
     Active Substance: BORTEZOMIB
     Indication: Plasma cell myeloma
     Dosage: UNK, CYCLE 1
     Route: 065
     Dates: start: 20200522
  18. BORTEZOMIB [Suspect]
     Active Substance: BORTEZOMIB
     Dosage: UNK, CYCLE 2
     Route: 065
     Dates: start: 20200619
  19. BORTEZOMIB [Suspect]
     Active Substance: BORTEZOMIB
     Dosage: UNK, CYCLE 3
     Route: 065
     Dates: start: 20200717
  20. BORTEZOMIB [Suspect]
     Active Substance: BORTEZOMIB
     Dosage: UNK, CYCLE 4
     Route: 065
     Dates: start: 20200819
  21. BORTEZOMIB [Suspect]
     Active Substance: BORTEZOMIB
     Dosage: UNK, CYCLE 5
     Route: 065
     Dates: start: 20200911
  22. BORTEZOMIB [Suspect]
     Active Substance: BORTEZOMIB
     Dosage: UNK, CYCLE 6
     Route: 065
     Dates: start: 20201230
  23. BORTEZOMIB [Suspect]
     Active Substance: BORTEZOMIB
     Dosage: UNK, CYCLE 7
     Route: 065
     Dates: start: 20210127
  24. BORTEZOMIB [Suspect]
     Active Substance: BORTEZOMIB
     Dosage: UNK, CYCLE 8
     Route: 065
     Dates: start: 20210224
  25. BORTEZOMIB [Suspect]
     Active Substance: BORTEZOMIB
     Dosage: UNK, CYCLE 9
     Route: 065
     Dates: start: 20210324
  26. BORTEZOMIB [Suspect]
     Active Substance: BORTEZOMIB
     Dosage: UNK, CYCLE 10
     Route: 065
     Dates: start: 20210421
  27. BORTEZOMIB [Suspect]
     Active Substance: BORTEZOMIB
     Dosage: UNK, CYCLE 11
     Route: 065
     Dates: start: 20210520
  28. BORTEZOMIB [Suspect]
     Active Substance: BORTEZOMIB
     Dosage: UNK, CYCLE 12
     Route: 065
     Dates: start: 20210616
  29. BORTEZOMIB [Suspect]
     Active Substance: BORTEZOMIB
     Dosage: UNK, CYCLE 13
     Route: 065
     Dates: start: 20210923
  30. BORTEZOMIB [Suspect]
     Active Substance: BORTEZOMIB
     Dosage: UNK, CYCLE 14
     Route: 065
     Dates: start: 20211021
  31. BORTEZOMIB [Suspect]
     Active Substance: BORTEZOMIB
     Dosage: UNK, CYCLE 15
     Route: 065
     Dates: start: 20211124
  32. BORTEZOMIB [Suspect]
     Active Substance: BORTEZOMIB
     Dosage: UNK, CYCLE 16
     Route: 065
     Dates: start: 20211222
  33. DEXAMETHASONE [Suspect]
     Active Substance: DEXAMETHASONE
     Indication: Product used for unknown indication
     Dosage: UNK, CYCLE 1
     Route: 065
     Dates: start: 20200522
  34. DEXAMETHASONE [Suspect]
     Active Substance: DEXAMETHASONE
     Dosage: UNK, CYCLE 2
     Route: 065
     Dates: start: 20200619
  35. DEXAMETHASONE [Suspect]
     Active Substance: DEXAMETHASONE
     Dosage: UNK, CYCLE 3
     Route: 065
     Dates: start: 20200717
  36. DEXAMETHASONE [Suspect]
     Active Substance: DEXAMETHASONE
     Dosage: UNK, CYCLE 4
     Route: 065
     Dates: start: 20200819
  37. DEXAMETHASONE [Suspect]
     Active Substance: DEXAMETHASONE
     Dosage: UNK, CYCLE 5
     Route: 065
     Dates: start: 20200911
  38. DEXAMETHASONE [Suspect]
     Active Substance: DEXAMETHASONE
     Dosage: UNK CYCLE 6
     Route: 065
     Dates: start: 20201230
  39. DEXAMETHASONE [Suspect]
     Active Substance: DEXAMETHASONE
     Dosage: UNK, CYCLE 7
     Route: 065
     Dates: start: 20210127
  40. DEXAMETHASONE [Suspect]
     Active Substance: DEXAMETHASONE
     Dosage: UNK, CYCLE 8
     Route: 065
     Dates: start: 20210224
  41. DEXAMETHASONE [Suspect]
     Active Substance: DEXAMETHASONE
     Dosage: UNK, CYCLE 9
     Route: 065
     Dates: start: 20210324
  42. DEXAMETHASONE [Suspect]
     Active Substance: DEXAMETHASONE
     Dosage: UNK, CYCLE 10
     Route: 065
     Dates: start: 20210421
  43. DEXAMETHASONE [Suspect]
     Active Substance: DEXAMETHASONE
     Dosage: UNK, CYCLE 11
     Route: 065
     Dates: start: 20210520
  44. DEXAMETHASONE [Suspect]
     Active Substance: DEXAMETHASONE
     Dosage: UNK, CYCLE 12
     Route: 065
     Dates: start: 20210616
  45. DEXAMETHASONE [Suspect]
     Active Substance: DEXAMETHASONE
     Dosage: UNK, CYCLE 13
     Route: 065
     Dates: start: 20210923
  46. DEXAMETHASONE [Suspect]
     Active Substance: DEXAMETHASONE
     Dosage: UNK, CYCLE 14
     Route: 065
     Dates: start: 20211021
  47. DEXAMETHASONE [Suspect]
     Active Substance: DEXAMETHASONE
     Dosage: UNK, CYCLE 15
     Route: 065
     Dates: start: 20211124
  48. DEXAMETHASONE [Suspect]
     Active Substance: DEXAMETHASONE
     Dosage: UNK, CYCLE 16
     Route: 065
     Dates: start: 20211222
  49. VELCADE [Suspect]
     Active Substance: BORTEZOMIB
     Indication: Plasma cell myeloma
     Dosage: UNK, CYCLE 1
     Route: 065
     Dates: start: 20200522
  50. VELCADE [Suspect]
     Active Substance: BORTEZOMIB
     Dosage: UNK, CYCLE 2
     Route: 065
     Dates: start: 20200619
  51. VELCADE [Suspect]
     Active Substance: BORTEZOMIB
     Dosage: UNK, CYCLE 3
     Route: 065
     Dates: start: 20200717
  52. VELCADE [Suspect]
     Active Substance: BORTEZOMIB
     Dosage: UNK, CYCLE 4
     Route: 065
     Dates: start: 20200819
  53. VELCADE [Suspect]
     Active Substance: BORTEZOMIB
     Dosage: UNK, CYCLE 5
     Route: 065
     Dates: start: 20200911
  54. VELCADE [Suspect]
     Active Substance: BORTEZOMIB
     Dosage: UNK, CYCLE 6
     Route: 065
     Dates: start: 20201230
  55. VELCADE [Suspect]
     Active Substance: BORTEZOMIB
     Dosage: UNK, CYCLE 7
     Route: 065
     Dates: start: 20210127
  56. VELCADE [Suspect]
     Active Substance: BORTEZOMIB
     Dosage: UNK, CYCLE 8
     Route: 065
     Dates: start: 20210224
  57. VELCADE [Suspect]
     Active Substance: BORTEZOMIB
     Dosage: UNK, CYCLE 9
     Route: 065
     Dates: start: 20210324
  58. VELCADE [Suspect]
     Active Substance: BORTEZOMIB
     Dosage: UNK, CYCLE 10
     Route: 065
     Dates: start: 20210421
  59. VELCADE [Suspect]
     Active Substance: BORTEZOMIB
     Dosage: UNK, CYCLE 11
     Route: 065
     Dates: start: 20210520
  60. VELCADE [Suspect]
     Active Substance: BORTEZOMIB
     Dosage: UNK, CYCLE 12
     Route: 065
     Dates: start: 20210616
  61. VELCADE [Suspect]
     Active Substance: BORTEZOMIB
     Dosage: UNK, CYCLE 13
     Route: 065
     Dates: start: 20210923
  62. VELCADE [Suspect]
     Active Substance: BORTEZOMIB
     Dosage: UNK, CYCLE 14
     Route: 065
     Dates: start: 20211021
  63. VELCADE [Suspect]
     Active Substance: BORTEZOMIB
     Dosage: UNK, CYCLE 15
     Route: 065
     Dates: start: 20211124
  64. VELCADE [Suspect]
     Active Substance: BORTEZOMIB
     Dosage: UNK, CYCLE 16
     Route: 065
     Dates: start: 20211222
  65. LENOGRASTIM [Suspect]
     Active Substance: LENOGRASTIM
     Indication: Peripheral sensory neuropathy
     Dosage: UNK
     Route: 065
     Dates: start: 20200819, end: 20210217
  66. LENOGRASTIM [Suspect]
     Active Substance: LENOGRASTIM
     Indication: Neutropenia

REACTIONS (6)
  - Feeling abnormal [Recovering/Resolving]
  - Swelling [Recovering/Resolving]
  - Fatigue [Unknown]
  - Back pain [Recovered/Resolved]
  - Breast abscess [Unknown]
  - Limb discomfort [Recovering/Resolving]

NARRATIVE: CASE EVENT DATE: 20200925
